FAERS Safety Report 5793941-4 (Version None)
Quarter: 2008Q2

REPORT INFORMATION
  Report Type: 
  Country: None (occurrence: None)
  Receive Date: 20080627
  Receipt Date: 20080618
  Transmission Date: 20081010
  Serious: No
  Sender: FDA-Public Use
  Company Number: FR-PFIZER INC-2008048019

PATIENT
  Age: 70 Year
  Sex: Female

DRUGS (13)
  1. SOLU-MEDROL [Suspect]
     Indication: LYMPHOMA
     Dates: start: 20070901, end: 20080104
  2. DEPO-MEDROL [Suspect]
     Indication: LYMPHOMA
     Dates: start: 20070901, end: 20080104
  3. ETOPOSIDE [Suspect]
     Indication: LYMPHOMA
     Dosage: DAILY DOSE:100MG/M2
     Route: 042
     Dates: start: 20070901, end: 20080104
  4. METHOTREXATE [Suspect]
     Indication: LYMPHOMA
     Dosage: DAILY DOSE:300MG
     Route: 042
     Dates: start: 20070901, end: 20080104
  5. ARACYTINE [Suspect]
     Indication: LYMPHOMA
     Route: 037
     Dates: start: 20070901, end: 20080104
  6. METHOTREXATE [Suspect]
     Route: 037
     Dates: start: 20070901, end: 20080104
  7. BICNU [Suspect]
     Indication: LYMPHOMA
     Dosage: DAILY DOSE:150MG
     Route: 042
     Dates: start: 20070901, end: 20080104
  8. ZOPHREN [Suspect]
     Indication: LYMPHOMA
     Route: 048
     Dates: start: 20070901, end: 20080104
  9. BACTRIM [Suspect]
     Indication: LYMPHOMA
     Dates: start: 20070901, end: 20080104
  10. OMEPRAZOLE [Concomitant]
  11. DEROXAT [Concomitant]
  12. FOLIC ACID [Concomitant]
  13. PRIMPERAN TAB [Concomitant]

REACTIONS (1)
  - NO ADVERSE EVENT [None]
